FAERS Safety Report 6863036-7 (Version None)
Quarter: 2010Q3

REPORT INFORMATION
  Report Type: 
  Country: None (occurrence: None)
  Receive Date: 20100721
  Receipt Date: 20100715
  Transmission Date: 20110219
  Serious: Yes (Other)
  Sender: FDA-Public Use
  Company Number: IT-PFIZER INC-2010088578

PATIENT
  Age: 26 Year
  Sex: Female
  Weight: 48 kg

DRUGS (4)
  1. GENOTROPIN [Suspect]
     Indication: GROWTH HORMONE DEFICIENCY
     Dosage: 0.8 MG, 1X/DAY
     Route: 058
     Dates: start: 20040101, end: 20060601
  2. FEDRA [Suspect]
     Indication: HYPOGONADISM
     Dosage: ONCE DAILY FOR 21DAYS/MONTH
     Dates: start: 20040101, end: 20080201
  3. FEDRA [Suspect]
     Dosage: ONCE DAILY FOR 21DAYS/MONTH
     Dates: start: 20080601
  4. EUTIROX [Suspect]
     Indication: THYROID HORMONE REPLACEMENT THERAPY
     Dosage: 25 UG, 1X/DAY
     Dates: start: 20040101, end: 20080201

REACTIONS (1)
  - MALIGNANT MELANOMA [None]
